FAERS Safety Report 4757613-7 (Version None)
Quarter: 2005Q3

REPORT INFORMATION
  Report Type: 
  Country: None (occurrence: None)
  Receive Date: 20050831
  Receipt Date: 20050825
  Transmission Date: 20060218
  Serious: Yes (Other)
  Sender: FDA-Public Use
  Company Number: PHBS2005BE12534

PATIENT
  Age: 50 Year
  Sex: Female

DRUGS (2)
  1. ZOMETA [Suspect]
     Indication: METASTASES TO BONE
     Route: 042
     Dates: start: 20021201
  2. TAXOTERE [Concomitant]
     Route: 065
     Dates: start: 20021201

REACTIONS (2)
  - ORAL PAIN [None]
  - PRIMARY SEQUESTRUM [None]
